FAERS Safety Report 7680636-5 (Version None)
Quarter: 2011Q3

REPORT INFORMATION
  Report Type: 
  Country: None (occurrence: None)
  Receive Date: 20110812
  Receipt Date: 20110809
  Transmission Date: 20111222
  Serious: Yes (Other)
  Sender: FDA-Public Use
  Company Number: US-CEPHALON-2011002948

PATIENT
  Sex: Male
  Weight: 94 kg

DRUGS (5)
  1. ADVIL LIQUI-GELS [Concomitant]
  2. ZANTAC [Concomitant]
  3. TREANDA [Suspect]
     Indication: CHRONIC LYMPHOCYTIC LEUKAEMIA
     Route: 042
     Dates: start: 20110523, end: 20110524
  4. ALLOPURINOL [Concomitant]
     Dates: start: 20110505, end: 20110601
  5. TYLENOL-500 [Concomitant]

REACTIONS (3)
  - INFUSION SITE PAIN [None]
  - INFUSION SITE IRRITATION [None]
  - THROMBOPHLEBITIS SUPERFICIAL [None]
